FAERS Safety Report 4849209-3 (Version None)
Quarter: 2005Q4

REPORT INFORMATION
  Report Type: 
  Country: None (occurrence: None)
  Receive Date: 20051209
  Receipt Date: 20050721
  Transmission Date: 20060501
  Serious: Yes (Hospitalization)
  Sender: FDA-Public Use
  Company Number: US-MERCK-0507USA03362

PATIENT
  Age: 66 Year
  Sex: Female
  Weight: 82 kg

DRUGS (9)
  1. VIOXX [Suspect]
     Indication: MONARTHRITIS
     Route: 048
     Dates: start: 20020101, end: 20030701
  2. EVISTA [Concomitant]
     Indication: HORMONE REPLACEMENT THERAPY
     Route: 065
  3. GLUCOSAMINE [Concomitant]
     Indication: MONARTHRITIS
     Route: 065
     Dates: start: 20020101, end: 20030701
  4. FLOVENT [Concomitant]
     Route: 065
  5. ACETAMINOPHEN AND PROPOXYPHENE NAPSYLATE [Concomitant]
     Route: 065
  6. OXAPROZIN [Concomitant]
     Route: 065
  7. DICLOFENAC [Concomitant]
     Route: 065
  8. POTASSIUM (UNSPECIFIED) [Concomitant]
     Route: 065
  9. CELEBREX [Concomitant]
     Route: 065

REACTIONS (20)
  - ACUTE MYOCARDIAL INFARCTION [None]
  - ANGINA UNSTABLE [None]
  - BACK INJURY [None]
  - BLOOD TRIGLYCERIDES INCREASED [None]
  - BUNDLE BRANCH BLOCK RIGHT [None]
  - CHEST PAIN [None]
  - CORONARY ARTERY DISEASE [None]
  - CORONARY ARTERY STENOSIS [None]
  - COUGH [None]
  - DEPRESSION [None]
  - DIZZINESS [None]
  - DYSPHAGIA [None]
  - FALL [None]
  - GASTROINTESTINAL DISORDER [None]
  - GASTROOESOPHAGEAL REFLUX DISEASE [None]
  - HAIR TEXTURE ABNORMAL [None]
  - HYPERTENSION [None]
  - LIVER DISORDER [None]
  - PLATELET AGGREGATION [None]
  - SLEEP APNOEA SYNDROME [None]
